FAERS Safety Report 19559994 (Version 4)
Quarter: 2021Q3

REPORT INFORMATION
  Report Type: Report from Study
  Country: None (occurrence: US)
  Receive Date: 20210716
  Receipt Date: 20210917
  Transmission Date: 20211014
  Serious: Yes (Hospitalization)
  Sender: FDA-Public Use
  Company Number: US-ABBVIE-21K-163-3990607-00

PATIENT
  Age: 61 Year
  Sex: Male
  Weight: 115.77 kg

DRUGS (4)
  1. SKYRIZI [Suspect]
     Active Substance: RISANKIZUMAB-RZAA
     Route: 058
     Dates: start: 20210821, end: 2021
  2. COVID?19 VACCINE [Concomitant]
     Route: 030
     Dates: start: 2021, end: 2021
  3. SKYRIZI [Suspect]
     Active Substance: RISANKIZUMAB-RZAA
     Indication: PSORIASIS
     Route: 058
     Dates: start: 20200722, end: 20210105
  4. COVID?19 VACCINE [Concomitant]
     Indication: COVID-19 IMMUNISATION
     Route: 030
     Dates: start: 202104, end: 202104

REACTIONS (7)
  - Cardiac disorder [Unknown]
  - Hypotension [Recovering/Resolving]
  - Pleural effusion [Recovering/Resolving]
  - Cardiac failure [Recovering/Resolving]
  - Procedural pain [Recovering/Resolving]
  - Cardiac dysfunction [Recovering/Resolving]
  - Obstruction [Recovering/Resolving]

NARRATIVE: CASE EVENT DATE: 2021
